FAERS Safety Report 16883914 (Version 1)
Quarter: 2019Q4

REPORT INFORMATION
  Report Type: Spontaneous
  Country: US (occurrence: US)
  Receive Date: 20191004
  Receipt Date: 20191004
  Transmission Date: 20200122
  Serious: No
  Sender: FDA-Public Use
  Company Number: US-MELINTA THERAPEUTICS, INC-US-MDCO-16-00231

PATIENT
  Age: 61 Year
  Sex: Female

DRUGS (5)
  1. CEFAZOLIN [Concomitant]
     Active Substance: CEFAZOLIN
     Indication: GRAFT INFECTION
     Dosage: NOT REPORTED
  2. ORBACTIV [Suspect]
     Active Substance: ORITAVANCIN
     Route: 041
  3. ORBACTIV [Suspect]
     Active Substance: ORITAVANCIN
     Route: 041
  4. ORBACTIV [Suspect]
     Active Substance: ORITAVANCIN
     Route: 041
  5. ORBACTIV [Suspect]
     Active Substance: ORITAVANCIN
     Indication: GRAFT INFECTION
     Route: 041

REACTIONS (2)
  - No adverse event [Unknown]
  - Off label use [Unknown]
